FAERS Safety Report 7078496-9 (Version None)
Quarter: 2010Q4

REPORT INFORMATION
  Report Type: 
  Country: None (occurrence: None)
  Receive Date: 20101102
  Receipt Date: 20101026
  Transmission Date: 20110411
  Serious: Yes (Life-Threatening)
  Sender: FDA-Public Use
  Company Number: PHHY2010US72176

PATIENT
  Sex: Female

DRUGS (5)
  1. VALTURNA [Suspect]
     Dosage: UNK
     Dates: start: 20100820
  2. TEKTURNA [Suspect]
     Dosage: UNK
     Dates: start: 20101009, end: 20101010
  3. PLAVIX [Concomitant]
  4. SYNTHROID [Concomitant]
  5. ELMIRON [Concomitant]

REACTIONS (7)
  - ASTHENIA [None]
  - DIZZINESS [None]
  - DRUG EFFECT INCREASED [None]
  - DYSSTASIA [None]
  - FEELING ABNORMAL [None]
  - MALAISE [None]
  - SENSATION OF HEAVINESS [None]
